FAERS Safety Report 9943106 (Version 2)
Quarter: 2014Q1

REPORT INFORMATION
  Report Type: Spontaneous
  Country: US (occurrence: US)
  Receive Date: 20140303
  Receipt Date: 20140327
  Transmission Date: 20141002
  Serious: Yes (Hospitalization)
  Sender: FDA-Public Use
  Company Number: US-B.I. PHARMACEUTICALS,INC./RIDGEFIELD-2014-BI-08366BP

PATIENT
  Age: 79 Year
  Sex: Male
  Weight: 104.5 kg

DRUGS (7)
  1. PRADAXA [Suspect]
     Indication: ATRIAL FIBRILLATION
     Dosage: 300 MG
     Route: 048
     Dates: start: 2011
  2. LISINOPRIL [Concomitant]
     Indication: HYPERTENSION
     Dosage: 10 MG
     Route: 048
  3. DIGOXIN [Concomitant]
     Indication: ARRHYTHMIA
     Dosage: 0.375 MG
     Route: 048
  4. SIMVASTATIN [Concomitant]
     Indication: BLOOD CHOLESTEROL INCREASED
     Dosage: 20 MG
     Route: 048
  5. DILTIAZEM ER [Concomitant]
     Indication: ARRHYTHMIA
     Dosage: 360 MG
     Route: 048
  6. METHOCARBAMOL [Concomitant]
     Indication: MUSCLE SPASMS
     Dosage: 1500 MG
     Route: 048
  7. FAMOTIDINE [Concomitant]
     Dosage: 20 MG
     Route: 048

REACTIONS (4)
  - Road traffic accident [Recovered/Resolved]
  - Rib fracture [Recovered/Resolved]
  - Haemorrhage [Recovered/Resolved]
  - Product quality issue [Recovered/Resolved]
